FAERS Safety Report 7889894-5 (Version None)
Quarter: 2011Q4

REPORT INFORMATION
  Report Type: 
  Country: None (occurrence: None)
  Receive Date: 20111103
  Receipt Date: 20111026
  Transmission Date: 20120403
  Serious: Yes (Hospitalization)
  Sender: FDA-Public Use
  Company Number: SE-VIIV HEALTHCARE LIMITED-B0760239A

PATIENT

DRUGS (2)
  1. KIVEXA [Suspect]
     Indication: HIV INFECTION
     Dosage: 1TAB PER DAY
     Route: 048
     Dates: start: 20110401, end: 20110801
  2. EFAVIRENZ [Concomitant]

REACTIONS (4)
  - RASH [None]
  - DIARRHOEA [None]
  - THROMBOCYTOPENIA [None]
  - TRANSAMINASES INCREASED [None]
